FAERS Safety Report 4535531-7 (Version None)
Quarter: 2004Q4

REPORT INFORMATION
  Report Type: 
  Country: None (occurrence: None)
  Receive Date: 20041214
  Receipt Date: 20040910
  Transmission Date: 20050328
  Serious: No
  Sender: FDA-Public Use
  Company Number: USA040977951

PATIENT
  Age: 55 Year
  Sex: Male

DRUGS (2)
  1. CIALIS [Suspect]
     Indication: IMPAIRED HEALING
     Dosage: 0.5 DSG FORM OTHER
  2. CIALIS [Suspect]
     Indication: PROSTATECTOMY
     Dosage: 0.5 DSG FORM OTHER

REACTIONS (2)
  - LOOSE STOOLS [None]
  - MYALGIA [None]
